FAERS Safety Report 5652751-9 (Version None)
Quarter: 2008Q1

REPORT INFORMATION
  Report Type: 
  Country: None (occurrence: None)
  Receive Date: 20080131
  Receipt Date: 20071019
  Transmission Date: 20080703
  Serious: No
  Sender: FDA-Public Use
  Company Number: US200710005238

PATIENT
  Age: 65 Year
  Sex: Female

DRUGS (4)
  1. BYETTA [Suspect]
     Dosage: 10 UG
     Dates: start: 20070912, end: 20070101
  2. EXENATIDE 10MCG PEN, DISPOSABLE DEVICE (EXENATIDE PEN (10MCG)) PEN,DIS [Concomitant]
  3. METFORMIN HCL [Concomitant]
  4. LEVEMIR (INSULIN DETEMIR) [Concomitant]

REACTIONS (2)
  - CHEST DISCOMFORT [None]
  - DIARRHOEA [None]
